FAERS Safety Report 5258358-X (Version None)
Quarter: 2007Q1

REPORT INFORMATION
  Report Type: 
  Country: None (occurrence: None)
  Receive Date: 20070306
  Receipt Date: 20070306
  Transmission Date: 20070707
  Serious: Yes (Life-Threatening)
  Sender: FDA-Public Use
  Company Number: None

PATIENT
  Age: 3 Year
  Sex: Female
  Weight: 5.3524 kg

DRUGS (1)
  1. BOTOX [Suspect]
     Indication: CEREBRAL PALSY
     Dosage: 40 U KG BODY WEIGHT 1 INJECTION VISIT IM
     Route: 030
     Dates: start: 20020405

REACTIONS (6)
  - APNOEA [None]
  - ASPIRATION [None]
  - ASTHENIA [None]
  - DROOLING [None]
  - DYSPHAGIA [None]
  - WEIGHT DECREASED [None]
